FAERS Safety Report 8966349 (Version 1)
Quarter: 2012Q4

REPORT INFORMATION
  Report Type: 
  Country: US (occurrence: US)
  Receive Date: 20121214
  Receipt Date: 20121214
  Transmission Date: 20130627
  Serious: Yes (Death, Hospitalization)
  Sender: FDA-Public Use
  Company Number: US-GLAXOSMITHKLINE-A0909701A

PATIENT
  Age: 72 Year
  Sex: Male

DRUGS (1)
  1. AVANDIA [Suspect]
     Indication: TYPE 2 DIABETES MELLITUS
     Dosage: 8MG Per day
     Route: 048
     Dates: start: 20050103, end: 20070322

REACTIONS (7)
  - Cerebrovascular accident [Fatal]
  - Ischaemic stroke [Unknown]
  - Myocardial infarction [Unknown]
  - Cardiac failure congestive [Unknown]
  - Arteriosclerosis coronary artery [Fatal]
  - Cardiovascular disorder [Unknown]
  - Cardiomyopathy [Unknown]
